FAERS Safety Report 8406526-8 (Version None)
Quarter: 2012Q2

REPORT INFORMATION
  Report Type: 
  Country: None (occurrence: None)
  Receive Date: 20120529
  Receipt Date: 20031010
  Transmission Date: 20120825
  Serious: Yes (Death)
  Sender: FDA-Public Use
  Company Number: JP-2012-12805

PATIENT

DRUGS (4)
  1. JUVELA N (TOCOPHERYL NICOTINATE) [Concomitant]
  2. CONIEL (BENIDIPINE HYROCHLORIDE) [Concomitant]
  3. PLETAL [Suspect]
     Dosage: 200 MG MILLIGRAM(S), DAILY DOSE
  4. METHYCOBAL (MECOBALAMIN) [Concomitant]

REACTIONS (1)
  - CEREBRAL HAEMORRHAGE [None]
